FAERS Safety Report 9312625 (Version 1)
Quarter: 2013Q2

REPORT INFORMATION
  Report Type: Spontaneous
  Country: IT (occurrence: IT)
  Receive Date: 20130528
  Receipt Date: 20130528
  Transmission Date: 20140414
  Serious: Yes (Hospitalization)
  Sender: FDA-Public Use
  Company Number: IT-GLAXOSMITHKLINE-B0894833A

PATIENT
  Age: 70 Year
  Sex: Male

DRUGS (12)
  1. AVODART [Suspect]
     Indication: BENIGN PROSTATIC HYPERPLASIA
     Route: 048
     Dates: start: 20130517
  2. CALCITROL [Concomitant]
  3. ALLOPURINOL [Concomitant]
     Dosage: 300MG PER DAY
     Route: 048
  4. NEXIUM [Concomitant]
  5. LASIX [Concomitant]
  6. CARDURA [Concomitant]
  7. CARDIRENE [Concomitant]
  8. TENORMIN [Concomitant]
  9. OLPRESS [Concomitant]
  10. DIBASE [Concomitant]
  11. KETOPROFEN [Concomitant]
  12. TRIATEC [Concomitant]

REACTIONS (2)
  - Tongue oedema [Recovering/Resolving]
  - Dysphagia [Recovering/Resolving]
